FAERS Safety Report 21439857 (Version 1)
Quarter: 2022Q4

REPORT INFORMATION
  Report Type: Report from Study
  Country: FR (occurrence: FR)
  Receive Date: 20221011
  Receipt Date: 20221011
  Transmission Date: 20230113
  Serious: Yes (Hospitalization)
  Sender: FDA-Public Use
  Company Number: FR-SERVIER-S22010197

PATIENT

DRUGS (8)
  1. PEGASPARGASE [Suspect]
     Active Substance: PEGASPARGASE
     Indication: Acute lymphocytic leukaemia
     Dosage: 1688 [IU], ON D15, D43
     Route: 042
     Dates: start: 20211206, end: 20220110
  2. VINCRISTINE [Suspect]
     Active Substance: VINCRISTINE
     Indication: Acute lymphocytic leukaemia
     Dosage: 2 MG, ON D15, D22, D43, D50
     Route: 042
     Dates: start: 20211206, end: 20220117
  3. CYCLOPHOSPHAMIDE [Suspect]
     Active Substance: CYCLOPHOSPHAMIDE
     Indication: Acute lymphocytic leukaemia
     Dosage: 1320 MG, ON D1, D29
     Route: 042
     Dates: start: 20211119, end: 20211227
  4. CYTARABINE [Suspect]
     Active Substance: CYTARABINE
     Indication: Acute lymphocytic leukaemia
     Dosage: 100 MG, FROM D3-D6, FROM D10-D13, FROM D31-34
     Route: 042
     Dates: start: 20211123, end: 20220107
  5. CYTARABINE [Suspect]
     Active Substance: CYTARABINE
     Dosage: 30 MG, ON D3, D31
     Route: 037
     Dates: start: 20211123, end: 20211228
  6. HYDROCORTISONE [Suspect]
     Active Substance: HYDROCORTISONE
     Indication: Acute lymphocytic leukaemia
     Dosage: 15 MG, ON D3, D31
     Route: 037
     Dates: start: 20211123, end: 20211228
  7. METHOTREXATE [Suspect]
     Active Substance: METHOTREXATE
     Indication: Acute lymphocytic leukaemia
     Dosage: 15 MG, ON D3, D31
     Route: 037
     Dates: start: 20211123, end: 20211228
  8. MERCAPTOPURINE [Suspect]
     Active Substance: MERCAPTOPURINE
     Indication: Acute lymphocytic leukaemia
     Dosage: 100 MG, FROM D1-D14, FROM D29-D42
     Route: 048
     Dates: start: 20211119, end: 20220109

REACTIONS (1)
  - Escherichia bacteraemia [Recovering/Resolving]

NARRATIVE: CASE EVENT DATE: 20220120
